FAERS Safety Report 18964847 (Version 3)
Quarter: 2021Q1

REPORT INFORMATION
  Report Type: Report from Study
  Country: BR (occurrence: BR)
  Receive Date: 20210303
  Receipt Date: 20210312
  Transmission Date: 20210420
  Serious: Yes (Hospitalization)
  Sender: FDA-Public Use
  Company Number: BR-SA-2021SA070318

PATIENT
  Age: 68 Year
  Sex: Male
  Weight: 69 kg

DRUGS (12)
  1. DEXAMETHASONE. [Suspect]
     Active Substance: DEXAMETHASONE
     Dosage: UNK UNK, QW
     Route: 065
     Dates: start: 20171204, end: 20171204
  2. ISATUXIMAB [Suspect]
     Active Substance: ISATUXIMAB
     Indication: PLASMA CELL MYELOMA
     Dosage: 20 MG/KG, QOW
     Route: 042
     Dates: start: 20210127, end: 20210127
  3. CLORETO DE MAGNESIO [Concomitant]
     Dosage: TOTAL DAILY DOSE : 520 MG
     Route: 048
     Dates: start: 20180104
  4. ZOMETA [Concomitant]
     Active Substance: ZOLEDRONIC ACID
     Dosage: TOTAL DAILY DOSE : 4 MG, ROUTE : INTRAVENOUS ? PERIPHERAL
     Route: 042
     Dates: start: 2016
  5. NEOSALDINA [CAFFEINE;ISOMETHEPTENE;METAMIZOLE SODIUM] [Concomitant]
     Active Substance: CAFFEINE\ISOMETHEPTENE\METHIMAZOLE
     Dosage: TOTAL DAILY DOSE : 1 TABLET
     Route: 048
     Dates: start: 20180105
  6. BACTRIM [Concomitant]
     Active Substance: SULFAMETHOXAZOLE\TRIMETHOPRIM
     Indication: PROPHYLAXIS
     Dosage: TOTAL DAILY DOSE : 960 MG
     Route: 048
     Dates: start: 20180403
  7. DEXAMETHASONE. [Suspect]
     Active Substance: DEXAMETHASONE
     Indication: PLASMA CELL MYELOMA
     Dosage: UNK UNK, QW
     Route: 065
     Dates: start: 20210217, end: 20210217
  8. SLOW?K [Concomitant]
     Active Substance: POTASSIUM CHLORIDE
     Dosage: TOTAL DAILY DOSE : 600 MG
     Route: 048
     Dates: start: 20180110
  9. INSULIN NPH [INSULIN ISOPHANE BOVINE] [Concomitant]
     Active Substance: INSULIN BEEF
     Dosage: TOTAL DAILY DOSE : 16 U
     Route: 058
     Dates: start: 20180312
  10. ISATUXIMAB [Suspect]
     Active Substance: ISATUXIMAB
     Dosage: 20 MG/KG, QW
     Route: 042
     Dates: start: 20171204, end: 20171204
  11. DIAMICRON [Concomitant]
     Active Substance: GLICLAZIDE
     Dosage: TOTAL DAILY DOSE : 90 MG
     Route: 048
     Dates: start: 201601
  12. MAGNESIUM B6 [MAGNESIUM;PYRIDOXINE HYDROCHLORIDE] [Concomitant]
     Indication: PROPHYLAXIS
     Dosage: TOTAL DAILY DOSE : 1 TABLET
     Route: 048
     Dates: start: 20180306

REACTIONS (1)
  - Electrolyte imbalance [Recovering/Resolving]

NARRATIVE: CASE EVENT DATE: 20210226
